FAERS Safety Report 23057816 (Version 1)
Quarter: 2023Q4

REPORT INFORMATION
  Report Type: Report from Study
  Country: CA (occurrence: CA)
  Receive Date: 20231012
  Receipt Date: 20231012
  Transmission Date: 20240110
  Serious: Yes (Other)
  Sender: FDA-Public Use
  Company Number: None

PATIENT
  Sex: Male

DRUGS (2)
  1. LEUPROLIDE ACETATE [Suspect]
     Active Substance: LEUPROLIDE ACETATE
     Indication: Prostate cancer
     Route: 058
  2. ENZALUTAMIDE [Suspect]
     Active Substance: ENZALUTAMIDE
     Indication: Product used for unknown indication
     Route: 065

REACTIONS (9)
  - Ligament sprain [Recovering/Resolving]
  - Fall [Recovering/Resolving]
  - Prostatic specific antigen increased [Recovering/Resolving]
  - Psoriasis [Recovering/Resolving]
  - Functional gastrointestinal disorder [Recovering/Resolving]
  - Condition aggravated [Recovering/Resolving]
  - Urinary retention [Recovering/Resolving]
  - Joint swelling [Recovering/Resolving]
  - Mobility decreased [Recovering/Resolving]
